FAERS Safety Report 10142571 (Version 3)
Quarter: 2014Q2

REPORT INFORMATION
  Report Type: Spontaneous
  Country: US (occurrence: US)
  Receive Date: 20140430
  Receipt Date: 20140602
  Transmission Date: 20141212
  Serious: Yes (Other)
  Sender: FDA-Public Use
  Company Number: US-AMGEN-USASP2014030257

PATIENT
  Age: 82 Year
  Sex: Female
  Weight: 65.1 kg

DRUGS (11)
  1. ARANESP [Suspect]
     Indication: NEPHROGENIC ANAEMIA
     Dosage: 200 MUG, Q2WK
     Route: 058
     Dates: start: 20130807, end: 20140120
  2. IRON [Concomitant]
     Route: 065
  3. RENVELA [Concomitant]
     Route: 065
  4. CALCIUM ACETATE [Concomitant]
     Route: 065
  5. DILTIAZEM [Concomitant]
     Route: 065
  6. ATORVASTATIN [Concomitant]
     Route: 065
  7. RENAL [Concomitant]
     Route: 065
  8. POTASSIUM [Concomitant]
     Route: 065
  9. PRILOSEC                           /00661201/ [Concomitant]
     Route: 065
  10. LEVOTHYROXINE [Concomitant]
     Route: 065
  11. LOSARTAN [Concomitant]
     Route: 065

REACTIONS (11)
  - Haemoglobin decreased [Unknown]
  - Therapeutic response decreased [Unknown]
  - Dyspnoea [Recovered/Resolved]
  - Cough [Unknown]
  - Upper-airway cough syndrome [Unknown]
  - Faeces discoloured [Unknown]
  - Back pain [Unknown]
  - Pain in extremity [Unknown]
  - Asthenia [Unknown]
  - Fatigue [Unknown]
  - Dyspnoea exertional [Unknown]
